FAERS Safety Report 9349848 (Version 1)
Quarter: 2013Q2

REPORT INFORMATION
  Report Type: Spontaneous
  Country: JP (occurrence: JP)
  Receive Date: 20130614
  Receipt Date: 20130614
  Transmission Date: 20140414
  Serious: Yes (Other)
  Sender: FDA-Public Use
  Company Number: JP-BIOMARINAP-JP-2013-100901

PATIENT
  Age: 13 Year
  Sex: Male

DRUGS (1)
  1. KUVAN [Suspect]
     Indication: PRODUCT USED FOR UNKNOWN INDICATION
     Dosage: 30 MG/KG, UNK

REACTIONS (1)
  - Epilepsy [Recovering/Resolving]
